FAERS Safety Report 10560946 (Version 1)
Quarter: 2014Q4

REPORT INFORMATION
  Report Type: Spontaneous
  Country: BR (occurrence: BR)
  Receive Date: 20141103
  Receipt Date: 20141103
  Transmission Date: 20150529
  Serious: Yes (Other)
  Sender: FDA-Public Use
  Company Number: BR-PFIZER INC-2014299123

PATIENT
  Age: 66 Year
  Sex: Female
  Weight: 96 kg

DRUGS (3)
  1. CELEBRA [Suspect]
     Active Substance: CELECOXIB
     Dosage: 1 TABLET (200 MG), 2X/DAY
     Route: 048
     Dates: start: 1999
  2. DIOVAN [Concomitant]
     Active Substance: VALSARTAN
     Indication: BLOOD PRESSURE
     Dosage: 1 TABLET, DAILY
  3. AMLODIPINE BESYLATE. [Concomitant]
     Active Substance: AMLODIPINE BESYLATE
     Indication: HYPERTENSION
     Dosage: 1 TABLET, DAILY

REACTIONS (1)
  - Rotator cuff syndrome [Unknown]
